FAERS Safety Report 10070073 (Version 2)
Quarter: 2014Q2

REPORT INFORMATION
  Report Type: Report from Study
  Country: FR (occurrence: FR)
  Receive Date: 20140410
  Receipt Date: 20140421
  Transmission Date: 20141212
  Serious: Yes (Hospitalization, Other)
  Sender: FDA-Public Use
  Company Number: FR-ROCHE-1377633

PATIENT
  Age: 68 Year
  Sex: Male

DRUGS (2)
  1. ZELBORAF [Suspect]
     Indication: NEOPLASM MALIGNANT
     Route: 048
     Dates: start: 20140322, end: 20140403
  2. ZELBORAF [Suspect]
     Indication: MALIGNANT MELANOMA

REACTIONS (4)
  - Vomiting [Unknown]
  - Skin discolouration [Not Recovered/Not Resolved]
  - Dysphagia [Not Recovered/Not Resolved]
  - Dysphonia [Unknown]
